FAERS Safety Report 6063109-5 (Version None)
Quarter: 2009Q1

REPORT INFORMATION
  Report Type: 
  Country: None (occurrence: None)
  Receive Date: 20090203
  Receipt Date: 20090122
  Transmission Date: 20090719
  Serious: Yes (Hospitalization)
  Sender: FDA-Public Use
  Company Number: US-PFIZER INC-2009161507

PATIENT
  Age: 10 Year
  Sex: Male

DRUGS (1)
  1. ZOLOFT [Suspect]

REACTIONS (3)
  - ATAXIA [None]
  - DROOLING [None]
  - GAIT DISTURBANCE [None]
